FAERS Safety Report 14660223 (Version 1)
Quarter: 2018Q1

REPORT INFORMATION
  Report Type: Report from Study
  Country: CA (occurrence: CA)
  Receive Date: 20180320
  Receipt Date: 20180320
  Transmission Date: 20180509
  Serious: Yes (Life-Threatening)
  Sender: FDA-Public Use
  Company Number: CA-JNJFOC-20180324150

PATIENT
  Sex: Female
  Weight: 79 kg

DRUGS (1)
  1. REMICADE [Suspect]
     Active Substance: INFLIXIMAB
     Indication: PRODUCT USED FOR UNKNOWN INDICATION
     Dosage: STRENGTH = 100 MG
     Route: 042
     Dates: start: 20160909

REACTIONS (1)
  - Metastatic neoplasm [Unknown]
